FAERS Safety Report 7779728-1 (Version None)
Quarter: 2011Q3

REPORT INFORMATION
  Report Type: 
  Country: None (occurrence: None)
  Receive Date: 20110927
  Receipt Date: 20110921
  Transmission Date: 20111222
  Serious: Yes (Disabling, Other)
  Sender: FDA-Public Use
  Company Number: US-PFIZER INC-2011224903

PATIENT
  Sex: Female
  Weight: 81.6 kg

DRUGS (2)
  1. EFFEXOR [Suspect]
     Indication: DEPRESSION
  2. EFFEXOR [Suspect]
     Indication: POST-TRAUMATIC STRESS DISORDER
     Dosage: 225 MG, 1X/DAY
     Dates: start: 20090101, end: 20110912

REACTIONS (9)
  - DYSSTASIA [None]
  - CRYING [None]
  - FEELING ABNORMAL [None]
  - DIZZINESS [None]
  - NAUSEA [None]
  - VOMITING [None]
  - GAIT DISTURBANCE [None]
  - APHAGIA [None]
  - BLOOD PRESSURE INCREASED [None]
